FAERS Safety Report 12252660 (Version 5)
Quarter: 2019Q2

REPORT INFORMATION
  Report Type: Spontaneous
  Country: US (occurrence: US)
  Receive Date: 20160411
  Receipt Date: 20190523
  Transmission Date: 20190711
  Serious: Yes (Other)
  Sender: FDA-Public Use
  Company Number: US-PFIZER INC-2016160835

PATIENT
  Age: 75 Year
  Sex: Female
  Weight: 61.23 kg

DRUGS (1)
  1. PREMARIN [Suspect]
     Active Substance: ESTROGENS, CONJUGATED
     Indication: BONE DENSITY ABNORMAL
     Dosage: 0.3 MG, 2X/WEEK [TAKE 1 TABLET TWICE A WEEK ]
     Route: 048
     Dates: start: 1999

REACTIONS (3)
  - Blindness [Unknown]
  - Musculoskeletal stiffness [Unknown]
  - Expired product administered [Unknown]
